FAERS Safety Report 10691269 (Version 1)
Quarter: 2015Q1

REPORT INFORMATION
  Report Type: Spontaneous
  Country: US (occurrence: US)
  Receive Date: 20150105
  Receipt Date: 20150105
  Transmission Date: 20150720
  Serious: No
  Sender: FDA-Public Use
  Company Number: US-009507513-1501USA000579

PATIENT
  Sex: Female

DRUGS (20)
  1. LOVAZA [Concomitant]
     Active Substance: OMEGA-3-ACID ETHYL ESTERS
     Indication: BLOOD TRIGLYCERIDES DECREASED
     Dosage: 1 G, 4 X A DAY
  2. WARFARIN [Concomitant]
     Active Substance: WARFARIN
     Indication: ANTICOAGULANT THERAPY
     Dosage: 2.5 MG, TIW
  3. CLARITIN-D 24 HOUR [Suspect]
     Active Substance: LORATADINE\PSEUDOEPHEDRINE SULFATE
     Indication: PRODUCT USED FOR UNKNOWN INDICATION
     Dosage: UNK, UNKNOWN
     Route: 048
  4. BENAZEPRIL HYDROCHLORIDE. [Concomitant]
     Active Substance: BENAZEPRIL HYDROCHLORIDE
     Indication: BLOOD PRESSURE DECREASED
     Dosage: UNK, UNKNOWN
  5. JANUVIA [Concomitant]
     Active Substance: SITAGLIPTIN PHOSPHATE
     Indication: BLOOD GLUCOSE DECREASED
     Dosage: 100 MG, QD
  6. PROAIR HFA [Concomitant]
     Active Substance: ALBUTEROL SULFATE
     Indication: PRODUCT USED FOR UNKNOWN INDICATION
     Dosage: 90 MICROGRAM, Q4H
  7. METOPROLOL [Concomitant]
     Active Substance: METOPROLOL
     Indication: BLOOD PRESSURE DECREASED
     Dosage: 10 MG, BID
  8. FLECAINIDE ACETATE. [Concomitant]
     Active Substance: FLECAINIDE ACETATE
     Indication: ATRIAL FIBRILLATION
     Dosage: 75 MG, BID
  9. HYDROCODONE [Concomitant]
     Active Substance: HYDROCODONE
     Indication: PAIN
     Dosage: UNK, PRN
  10. TRICOR [Concomitant]
     Active Substance: FENOFIBRATE
     Indication: BLOOD TRIGLYCERIDES DECREASED
     Dosage: 145 MG, TIW
  11. LEVOCETIRIZINE [Concomitant]
     Active Substance: LEVOCETIRIZINE
     Indication: ANTIALLERGIC THERAPY
     Dosage: 5 MG, QD
  12. LANTUS [Concomitant]
     Active Substance: INSULIN GLARGINE
     Indication: BLOOD GLUCOSE DECREASED
     Dosage: 75 IU, QD
  13. VYTORIN [Concomitant]
     Active Substance: EZETIMIBE\SIMVASTATIN
     Indication: BLOOD TRIGLYCERIDES DECREASED
     Dosage: UNK UNK, TIW
  14. IPRATROPIUM BROMIDE. [Concomitant]
     Active Substance: IPRATROPIUM BROMIDE
     Indication: PRODUCT USED FOR UNKNOWN INDICATION
     Dosage: 2 DF, BID
  15. CELEBREX [Concomitant]
     Active Substance: CELECOXIB
     Indication: PAIN
     Dosage: 200 MG, QD
  16. CYANOCOBALAMIN. [Concomitant]
     Active Substance: CYANOCOBALAMIN
     Indication: PRODUCT USED FOR UNKNOWN INDICATION
     Dosage: 1000 MG, QM
  17. NEXIUM [Concomitant]
     Active Substance: ESOMEPRAZOLE MAGNESIUM
     Indication: GASTRIC DISORDER
     Dosage: 40 MG, BID
  18. SYNTHROID [Concomitant]
     Active Substance: LEVOTHYROXINE SODIUM
     Indication: HYPOTHYROIDISM
     Dosage: 0.125 MG, QD
  19. APIDRA [Concomitant]
     Active Substance: INSULIN GLULISINE
     Indication: BLOOD GLUCOSE DECREASED
     Dosage: UNK, 4 X A DAY
  20. QNASL [Concomitant]
     Active Substance: BECLOMETHASONE DIPROPIONATE
     Indication: PRODUCT USED FOR UNKNOWN INDICATION
     Dosage: 2 DF, QD

REACTIONS (4)
  - Lacrimation increased [Unknown]
  - Drug hypersensitivity [Unknown]
  - Eye pruritus [Unknown]
  - Vision blurred [Unknown]
